FAERS Safety Report 23702062 (Version 1)
Quarter: 2024Q2

REPORT INFORMATION
  Report Type: Spontaneous
  Country: US (occurrence: None)
  Receive Date: 20240402
  Receipt Date: 20240402
  Transmission Date: 20240717
  Serious: Yes (Death)
  Sender: FDA-Public Use
  Company Number: None

PATIENT
  Sex: Female

DRUGS (1)
  1. PIRFENIDONE [Suspect]
     Active Substance: PIRFENIDONE
     Dosage: OTHER FREQUENCY : DAILY  W/BREAKFAST;?
     Route: 048
     Dates: start: 20220624

REACTIONS (1)
  - Death [None]
